FAERS Safety Report 10533506 (Version 1)
Quarter: 2014Q4

REPORT INFORMATION
  Report Type: Report from Study
  Country: DE (occurrence: DE)
  Receive Date: 20141022
  Receipt Date: 20141022
  Transmission Date: 20150529
  Serious: Yes (Other)
  Sender: FDA-Public Use
  Company Number: PHHY2014DE135261

PATIENT
  Sex: Female

DRUGS (3)
  1. BISOPROLOL [Concomitant]
     Active Substance: BISOPROLOL
     Dosage: MATERNAL DOSE: 1 MG DAILY
     Route: 064
     Dates: start: 2000, end: 20140714
  2. RAMIPRIL. [Concomitant]
     Active Substance: RAMIPRIL
     Dosage: MATERNAL DOSE: 500 MG TWICE A DAY
     Route: 064
  3. GILENYA [Suspect]
     Active Substance: FINGOLIMOD HYDROCHLORIDE
     Dosage: MATERNAL DOSE: 0.5 MG ONCE DAILY
     Route: 064
     Dates: start: 20110412, end: 20130418

REACTIONS (3)
  - Maternal exposure before pregnancy [Unknown]
  - Heart rate irregular [Unknown]
  - Normal newborn [Unknown]
